FAERS Safety Report 18603748 (Version 1)
Quarter: 2020Q4

REPORT INFORMATION
  Report Type: Spontaneous
  Country: US (occurrence: US)
  Receive Date: 20201210
  Receipt Date: 20201210
  Transmission Date: 20210114
  Serious: No
  Sender: FDA-Public Use
  Company Number: None

PATIENT
  Age: 89 Year
  Sex: Female

DRUGS (13)
  1. TRIAMCINOLONE ACETONIDE. [Concomitant]
     Active Substance: TRIAMCINOLONE ACETONIDE
  2. PROCTOSOL HC [Concomitant]
  3. AMBRISENTAN [Suspect]
     Active Substance: AMBRISENTAN
     Indication: PULMONARY ARTERIAL HYPERTENSION
     Route: 048
  4. STOOL SOFTENER (DOCUSATE) [Concomitant]
     Active Substance: DOCUSATE
  5. ASPIR-81 [Concomitant]
     Active Substance: ASPIRIN
  6. MAXIMUM D3 [Concomitant]
     Active Substance: CHOLECALCIFEROL
  7. SPIRONOLACTONE. [Concomitant]
     Active Substance: SPIRONOLACTONE
  8. LASIX [Concomitant]
     Active Substance: FUROSEMIDE
  9. LORATADINE. [Concomitant]
     Active Substance: LORATADINE
  10. ADCIRCA [Concomitant]
     Active Substance: TADALAFIL
  11. ALPRAZOLAM. [Concomitant]
     Active Substance: ALPRAZOLAM
  12. FLUCONAZOLE. [Concomitant]
     Active Substance: FLUCONAZOLE
  13. LOVASTATIN. [Concomitant]
     Active Substance: LOVASTATIN

REACTIONS (1)
  - Neck mass [None]

NARRATIVE: CASE EVENT DATE: 20201210
